FAERS Safety Report 16135119 (Version 1)
Quarter: 2019Q1

REPORT INFORMATION
  Report Type: Spontaneous
  Country: US (occurrence: US)
  Receive Date: 20190329
  Receipt Date: 20190329
  Transmission Date: 20190418
  Serious: No
  Sender: FDA-Public Use
  Company Number: US-BAUSCH-BL-2019-007487

PATIENT
  Sex: Female
  Weight: 63.5 kg

DRUGS (1)
  1. RETIN-A [Suspect]
     Active Substance: TRETINOIN
     Indication: SKIN DISORDER
     Route: 065

REACTIONS (1)
  - Drug effect incomplete [Unknown]
